FAERS Safety Report 4281869-0 (Version None)
Quarter: 2004Q1

REPORT INFORMATION
  Report Type: 
  Country: None (occurrence: None)
  Receive Date: 20040128
  Receipt Date: 20040116
  Transmission Date: 20041129
  Serious: Yes (Hospitalization)
  Sender: FDA-Public Use
  Company Number: 03P-062-0243996-00

PATIENT
  Age: 15 Year
  Sex: Female
  Weight: 60 kg

DRUGS (8)
  1. AKINETON [Suspect]
     Indication: SUICIDE ATTEMPT
     Dosage: TABLET, 1-2 TABLETS, PER ORAL
     Route: 048
     Dates: start: 20031202, end: 20031202
  2. BRISERIN DRAGEES [Suspect]
     Indication: SUICIDE ATTEMPT
     Dosage: TABLET, 1-2 TABLETS, PER ORAL
     Route: 048
     Dates: start: 20031202, end: 20031202
  3. DIGOXIN [Suspect]
     Indication: SUICIDE ATTEMPT
     Dosage: 0.2, 1-2 TABLETS, PER ORAL
     Route: 048
     Dates: start: 20031202, end: 20031202
  4. GLYBURIDE [Suspect]
     Indication: SUICIDE ATTEMPT
     Dosage: 3.5, 1-2 TABLETS, PER ORAL
     Route: 048
     Dates: start: 20031202, end: 20031202
  5. TRAMADOL HCL [Suspect]
     Indication: SUICIDE ATTEMPT
     Dosage: TABLET, 1-2 TABLETS, PER ORAL
     Route: 048
     Dates: start: 20031202, end: 20031202
  6. MOBIC [Suspect]
     Indication: SUICIDE ATTEMPT
     Dosage: 7.5, 1-2 TABLETS, PER ORAL
     Route: 048
     Dates: start: 20031202, end: 20031202
  7. LEVOTHYROXINE SODIUM [Suspect]
     Indication: SUICIDE ATTEMPT
     Dosage: 100, 1-2 TABLETS, PER ORAL
     Route: 048
     Dates: start: 20031202, end: 20031202
  8. FLUNITRAZEPAM [Suspect]
     Indication: SUICIDAL IDEATION
     Dosage: 1, 1-2 TABLETS, PER ORAL
     Route: 048
     Dates: start: 20031202, end: 20031202

REACTIONS (4)
  - DRUG TOXICITY [None]
  - HYPOGLYCAEMIA [None]
  - SOMNOLENCE [None]
  - SUICIDE ATTEMPT [None]
